FAERS Safety Report 13756331 (Version 11)
Quarter: 2017Q4

REPORT INFORMATION
  Report Type: Report from Study
  Country: US (occurrence: US)
  Receive Date: 20170714
  Receipt Date: 20171211
  Transmission Date: 20180320
  Serious: Yes (Other)
  Sender: FDA-Public Use
  Company Number: US-PFIZER INC-2017278250

PATIENT
  Age: 52 Year
  Sex: Female

DRUGS (4)
  1. IBRANCE [Suspect]
     Active Substance: PALBOCICLIB
     Dosage: 125 MG, CYCLIC, (DAILY/3 WEEKS ON /1 WEEK OFF)
     Route: 048
     Dates: start: 20170724
  2. IBRANCE [Suspect]
     Active Substance: PALBOCICLIB
     Indication: BREAST CANCER METASTATIC
     Dosage: 125 MG, CYCLIC, (DAILY/3 WEEKS ON /1 WEEK OFF)
     Route: 048
     Dates: start: 20170617, end: 20170627
  3. IBRANCE [Suspect]
     Active Substance: PALBOCICLIB
     Dosage: 125 MG, CYCLIC (DAILY/3 WEEKS ON, 1 WEEK OFF)
     Route: 048
     Dates: start: 20170617
  4. IBRANCE [Suspect]
     Active Substance: PALBOCICLIB
     Dosage: 125 MG, CYCLIC, (DAILY/3 WEEKS ON /1 WEEK OFF)
     Route: 048
     Dates: start: 20170627

REACTIONS (25)
  - Condition aggravated [Not Recovered/Not Resolved]
  - Diarrhoea [Not Recovered/Not Resolved]
  - Muscular weakness [Unknown]
  - Fatigue [Not Recovered/Not Resolved]
  - Blood potassium increased [Unknown]
  - Pyrexia [Unknown]
  - Hypokalaemia [Unknown]
  - Nausea [Unknown]
  - Headache [Unknown]
  - Wheezing [Unknown]
  - Drug dose omission [Unknown]
  - Localised infection [Unknown]
  - Condition aggravated [Unknown]
  - Abdominal discomfort [Unknown]
  - Groin pain [Unknown]
  - Dyspnoea [Unknown]
  - Cough [Unknown]
  - Second primary malignancy [Unknown]
  - Bone pain [Unknown]
  - Abdominal distension [Unknown]
  - Tongue disorder [Unknown]
  - Cervix carcinoma [Unknown]
  - Asthenia [Unknown]
  - Rhinorrhoea [Unknown]
  - Upper respiratory tract infection [Unknown]

NARRATIVE: CASE EVENT DATE: 2017
